FAERS Safety Report 19767819 (Version 2)
Quarter: 2021Q3

REPORT INFORMATION
  Report Type: Spontaneous
  Country: US (occurrence: US)
  Receive Date: 20210830
  Receipt Date: 20210928
  Transmission Date: 20211014
  Serious: No
  Sender: FDA-Public Use
  Company Number: US-KYOWAKIRIN-2021BKK014406

PATIENT

DRUGS (1)
  1. NOURIANZ [Suspect]
     Active Substance: ISTRADEFYLLINE
     Indication: PARKINSON^S DISEASE
     Dosage: 40 MG, QHS
     Route: 048
     Dates: start: 20210512, end: 20210803

REACTIONS (3)
  - Condition aggravated [Recovered/Resolved]
  - Therapy non-responder [Unknown]
  - On and off phenomenon [Recovered/Resolved]

NARRATIVE: CASE EVENT DATE: 2021
